FAERS Safety Report 9985133 (Version 1)
Quarter: 2014Q1

REPORT INFORMATION
  Report Type: Report from Study
  Country: US (occurrence: US)
  Receive Date: 20140307
  Receipt Date: 20140307
  Transmission Date: 20141002
  Serious: No
  Sender: FDA-Public Use
  Company Number: US-ABBVIE-13P-163-1184926-00

PATIENT
  Age: 38 Year
  Sex: Male

DRUGS (8)
  1. HUMIRA [Suspect]
     Indication: PSORIASIS
     Route: 058
     Dates: start: 20131108
  2. HUMIRA [Suspect]
     Indication: PSORIATIC ARTHROPATHY
  3. XYREM [Suspect]
     Indication: NARCOLEPSY
     Dosage: AT NIGHT: 11:00 PM AND 3:00 AM
     Dates: start: 20131108, end: 20131222
  4. METHADONE [Concomitant]
     Indication: BACK PAIN
  5. GABAPENTIN [Concomitant]
     Indication: BACK PAIN
  6. GABAPENTIN [Concomitant]
     Indication: FIBROMYALGIA
  7. IMITREX [Concomitant]
     Indication: MIGRAINE
  8. NUVIGIL [Concomitant]
     Indication: NARCOLEPSY

REACTIONS (6)
  - Sleep terror [Recovered/Resolved]
  - Sleep disorder [Not Recovered/Not Resolved]
  - Panic reaction [Not Recovered/Not Resolved]
  - Oropharyngeal pain [Not Recovered/Not Resolved]
  - Pharyngeal oedema [Not Recovered/Not Resolved]
  - Upper respiratory tract infection [Recovered/Resolved]
